FAERS Safety Report 5191428-3 (Version None)
Quarter: 2006Q4

REPORT INFORMATION
  Report Type: 
  Country: None (occurrence: None)
  Receive Date: 20061226
  Receipt Date: 20061219
  Transmission Date: 20070319
  Serious: Yes (Other)
  Sender: FDA-Public Use
  Company Number: 2006AC02384

PATIENT
  Sex: Female

DRUGS (1)
  1. ZESTORETIC [Suspect]
     Dosage: 20/12.5
     Dates: start: 20061216

REACTIONS (2)
  - FEELING ABNORMAL [None]
  - URINARY RETENTION [None]
